FAERS Safety Report 21338116 (Version 1)
Quarter: 2022Q3

REPORT INFORMATION
  Report Type: Spontaneous
  Country: US (occurrence: US)
  Receive Date: 20220915
  Receipt Date: 20220915
  Transmission Date: 20221027
  Serious: No
  Sender: FDA-Public Use
  Company Number: US-MYLANLABS-2022M1081940

PATIENT
  Age: 61 Year
  Sex: Male
  Weight: 88.45 kg

DRUGS (2)
  1. MUSE [Suspect]
     Active Substance: ALPROSTADIL
     Indication: Erectile dysfunction
     Dosage: UNK (1000 MICROGRAM)
     Route: 066
     Dates: start: 20220707
  2. MUSE [Suspect]
     Active Substance: ALPROSTADIL
     Dosage: UNK (1000 MICROGRAM)
     Route: 066
     Dates: start: 20220707

REACTIONS (2)
  - Product dispensing issue [Unknown]
  - Product quality issue [Unknown]

NARRATIVE: CASE EVENT DATE: 20220707
